FAERS Safety Report 6110628-9 (Version None)
Quarter: 2009Q1

REPORT INFORMATION
  Report Type: 
  Country: None (occurrence: None)
  Receive Date: 20090306
  Receipt Date: 20090223
  Transmission Date: 20090719
  Serious: Yes (Hospitalization)
  Sender: FDA-Public Use
  Company Number: 230852K09USA

PATIENT
  Age: 57 Year
  Sex: Female
  Weight: 61 kg

DRUGS (5)
  1. REBIF [Suspect]
     Indication: MULTIPLE SCLEROSIS
     Dosage: 44 MCG, 3 IN 1 WEEKS, SUBCUTANEOUS
     Route: 058
     Dates: start: 20080815
  2. ALEVE (CAPLET) [Concomitant]
  3. BUPROPION XL (BUPROPION) [Concomitant]
  4. ALENDRONATE SODIUM [Concomitant]
  5. TIZANIDINE HCL [Concomitant]

REACTIONS (1)
  - BREAST CANCER IN SITU [None]
